FAERS Safety Report 6679578-3 (Version None)
Quarter: 2010Q2

REPORT INFORMATION
  Report Type: 
  Country: None (occurrence: None)
  Receive Date: 20100408
  Receipt Date: 20090714
  Transmission Date: 20101027
  Serious: No
  Sender: FDA-Public Use
  Company Number: 2009-00504

PATIENT
  Age: 74 Year
  Sex: Male
  Weight: 95.2554 kg

DRUGS (17)
  1. ZICAM INTENSE SINUS RELIEF [Suspect]
     Dosage: QD - 2 MONTHS
     Dates: start: 20090201, end: 20090401
  2. ZICAM ALLERGY RELIEF GEL SWABS [Suspect]
     Indication: NASAL CONGESTION
     Dosage: QD - 2 DAYS
     Dates: start: 20090501, end: 20090501
  3. ACIPHEX [Concomitant]
  4. MIRALEX [Concomitant]
  5. BENAZEPRIL HYDROCHLORIDE [Concomitant]
  6. ATENOLOL [Concomitant]
  7. VERAPAMIL [Concomitant]
  8. PRAVACHOL [Concomitant]
  9. FLOMAX [Concomitant]
  10. VESICARE [Concomitant]
  11. GABAPENTIN [Concomitant]
  12. ZOMETA [Concomitant]
  13. REVLIMID [Concomitant]
  14. DEXAMETHASONE [Concomitant]
  15. MULT-VITAMIN [Concomitant]
  16. VITAMINS C AND E [Concomitant]
  17. CALTRATE 600D [Concomitant]

REACTIONS (2)
  - AGEUSIA [None]
  - ANOSMIA [None]
